FAERS Safety Report 20825713 (Version 1)
Quarter: 2022Q2

REPORT INFORMATION
  Report Type: Report from Study
  Country: US (occurrence: US)
  Receive Date: 20220513
  Receipt Date: 20220513
  Transmission Date: 20220720
  Serious: Yes (Other)
  Sender: FDA-Public Use
  Company Number: US-PHARMACOVIGILANCE-US-KAD-22-00405

PATIENT
  Sex: Female

DRUGS (1)
  1. REZUROCK [Suspect]
     Active Substance: BELUMOSUDIL
     Indication: Graft versus host disease
     Dosage: 200 MILLIGRAM, QD
     Route: 065
     Dates: start: 20220312

REACTIONS (9)
  - Graft versus host disease in eye [Unknown]
  - Condition aggravated [Unknown]
  - Graft versus host disease in gastrointestinal tract [Unknown]
  - Condition aggravated [Unknown]
  - Graft versus host disease [Unknown]
  - Condition aggravated [Unknown]
  - Dyspepsia [Recovering/Resolving]
  - Nausea [Recovering/Resolving]
  - Decreased appetite [Recovering/Resolving]
